FAERS Safety Report 22330103 (Version 1)
Quarter: 2023Q2

REPORT INFORMATION
  Report Type: Spontaneous
  Country: US (occurrence: None)
  Receive Date: 20230517
  Receipt Date: 20230517
  Transmission Date: 20230722
  Serious: No
  Sender: FDA-Public Use
  Company Number: US-ROCHE-3095067

PATIENT
  Sex: Female
  Weight: 92.162 kg

DRUGS (6)
  1. ACTEMRA [Suspect]
     Active Substance: TOCILIZUMAB
     Indication: Arteritis
     Dosage: 162 MG/0.9 ML
     Route: 058
     Dates: start: 20191206
  2. ACTEMRA [Suspect]
     Active Substance: TOCILIZUMAB
     Dosage: 162 MG/0.9 ML
     Route: 058
     Dates: start: 20200710
  3. HUMALOG [Concomitant]
     Active Substance: INSULIN LISPRO
     Route: 058
     Dates: start: 20191127
  4. LISINOPRIL [Concomitant]
     Active Substance: LISINOPRIL
     Route: 048
     Dates: start: 20191127
  5. VANTIN (UNITED STATES) [Concomitant]
     Route: 048
     Dates: start: 20191205
  6. FENOFIBRATE [Concomitant]
     Active Substance: FENOFIBRATE
     Route: 048
     Dates: start: 20200804

REACTIONS (2)
  - Chest discomfort [Recovering/Resolving]
  - Product dose omission issue [Unknown]
